FAERS Safety Report 12159868 (Version 2)
Quarter: 2016Q2

REPORT INFORMATION
  Report Type: Spontaneous
  Country: EG (occurrence: EG)
  Receive Date: 20160308
  Receipt Date: 20160414
  Transmission Date: 20160815
  Serious: Yes (Death, Hospitalization)
  Sender: FDA-Public Use
  Company Number: EG-BAYER-2016-044832

PATIENT
  Sex: Male

DRUGS (1)
  1. ULTRAVIST [Suspect]
     Active Substance: IOPROMIDE
     Indication: ANGIOGRAM
     Dosage: UNK UNK, ONCE

REACTIONS (4)
  - Hypersensitivity [None]
  - Cardiac arrest [Fatal]
  - Dyspnoea [None]
  - Asphyxia [None]
